FAERS Safety Report 8906192 (Version 1)
Quarter: 2012Q4

REPORT INFORMATION
  Report Type: Spontaneous
  Country: US (occurrence: None)
  Receive Date: 20121112
  Receipt Date: 20121112
  Transmission Date: 20130627
  Serious: Yes (Hospitalization)
  Sender: FDA-Public Use
  Company Number: None

PATIENT
  Age: 9 Year
  Sex: Male
  Weight: 33 kg

DRUGS (2)
  1. NEXIUM [Suspect]
     Indication: GERD
     Route: 048
     Dates: start: 20121013
  2. NEXIUM [Suspect]
     Indication: CONSTIPATION
     Route: 048
     Dates: start: 20121013

REACTIONS (4)
  - Pancytopenia [None]
  - Paraesthesia [None]
  - Paraesthesia [None]
  - Febrile neutropenia [None]
